FAERS Safety Report 14206636 (Version 1)
Quarter: 2017Q4

REPORT INFORMATION
  Report Type: Spontaneous
  Country: FR (occurrence: FR)
  Receive Date: 20171120
  Receipt Date: 20171120
  Transmission Date: 20180321
  Serious: Yes (Disabling)
  Sender: FDA-Public Use
  Company Number: FR-MERCK KGAA-2034704

PATIENT
  Age: 50 Year
  Sex: Female

DRUGS (1)
  1. NOVOTHYROX [Suspect]
     Active Substance: LEVOTHYROXINE SODIUM
     Indication: HYPOTHYROIDISM
     Route: 048

REACTIONS (6)
  - Asthenia [Not Recovered/Not Resolved]
  - Weight increased [Not Recovered/Not Resolved]
  - Vertigo [Not Recovered/Not Resolved]
  - Myalgia [Not Recovered/Not Resolved]
  - Amnesia [Not Recovered/Not Resolved]
  - Sleep disorder [Not Recovered/Not Resolved]

NARRATIVE: CASE EVENT DATE: 201707
